FAERS Safety Report 5187792-1 (Version None)
Quarter: 2006Q4

REPORT INFORMATION
  Report Type: 
  Country: None (occurrence: None)
  Receive Date: 20061221
  Receipt Date: 20061212
  Transmission Date: 20070319
  Serious: Yes (Other)
  Sender: FDA-Public Use
  Company Number: 2006SE06664

PATIENT
  Age: 67 Year
  Sex: Female
  Weight: 73 kg

DRUGS (6)
  1. AMIAS 8MG TABLETS [Suspect]
     Route: 048
     Dates: start: 20061103, end: 20061122
  2. ASPIRIN [Concomitant]
     Indication: PROPHYLAXIS
     Route: 048
     Dates: start: 20030101
  3. BENDROFLUMETHIAZIDE [Concomitant]
     Indication: HYPERTENSION
     Route: 048
     Dates: start: 20040901, end: 20061103
  4. CITALOPRAM [Concomitant]
     Route: 048
     Dates: start: 20030101, end: 20060919
  5. LISINOPRIL [Concomitant]
     Route: 048
     Dates: start: 20011108, end: 20061103
  6. ACETAMINOPHEN [Concomitant]
     Indication: PAIN
     Route: 065
     Dates: start: 20030101

REACTIONS (3)
  - DYSPNOEA [None]
  - PEAK EXPIRATORY FLOW RATE DECREASED [None]
  - WHEEZING [None]
